FAERS Safety Report 19205686 (Version 2)
Quarter: 2024Q3

REPORT INFORMATION
  Report Type: Spontaneous
  Country: US (occurrence: US)
  Receive Date: 20210503
  Receipt Date: 20240906
  Transmission Date: 20241016
  Serious: No
  Sender: DOMPE FARMACEUTICI
  Company Number: US-FARMAPROD-202102-0167

PATIENT
  Sex: Female

DRUGS (16)
  1. OXERVATE [Suspect]
     Active Substance: CENEGERMIN-BKBJ
     Indication: Neurotrophic keratopathy
     Route: 047
     Dates: start: 20210126
  2. OXERVATE [Suspect]
     Active Substance: CENEGERMIN-BKBJ
     Route: 047
     Dates: start: 20231012
  3. OXERVATE [Suspect]
     Active Substance: CENEGERMIN-BKBJ
  4. CEQUA [Concomitant]
     Active Substance: CYCLOSPORINE
     Dosage: DROPERETTE
  5. SYSTANE (HYPROMELLOSE 2910 (4000 MPA.S)) [Concomitant]
     Active Substance: HYPROMELLOSE 2910 (4000 MPA.S)
     Dosage: 0.3%-0.4%
  6. LUMIFY [Concomitant]
     Active Substance: BRIMONIDINE TARTRATE
  7. OCREVUS [Concomitant]
     Active Substance: OCRELIZUMAB
     Dosage: 300 ML / 100 ML VIAL
  8. VITAMIN B COMPLEX [Concomitant]
     Active Substance: CYANOCOBALAMIN\DEXPANTHENOL\NIACINAMIDE\PYRIDOXINE HYDROCHLORIDE\RIBOFLAVIN 5^-PHOSPHATE SODIUM\THIA
  9. ZINC-15 [Concomitant]
  10. BIOTIN [Concomitant]
     Active Substance: BIOTIN
  11. MULTIVITAMIN 50 PLUS [Concomitant]
  12. VALACYCLOVIR [Concomitant]
     Active Substance: VALACYCLOVIR HYDROCHLORIDE
  13. SIMETHICONE (DIMETHICONE) [Concomitant]
     Active Substance: DIMETHICONE
     Dosage: 40 MG  /0.6 ML
  14. PREGABALIN [Concomitant]
     Active Substance: PREGABALIN
  15. MEGESTROL ACETATE [Concomitant]
     Active Substance: MEGESTROL ACETATE
     Dosage: 800 MG / 20 ML
  16. PAROXETINE HYDROCHLORIDE [Concomitant]
     Active Substance: PAROXETINE HYDROCHLORIDE\PAROXETINE HYDROCHLORIDE ANHYDROUS

REACTIONS (11)
  - Eye pain [Unknown]
  - Eye irritation [Unknown]
  - Eyelid irritation [Not Recovered/Not Resolved]
  - Foreign body sensation in eyes [Unknown]
  - Ocular hyperaemia [Unknown]
  - Eye pruritus [Unknown]
  - Eye swelling [Unknown]
  - Lacrimation increased [Unknown]
  - Ocular discomfort [Unknown]
  - Corneal deposits [Unknown]
  - Product dose omission issue [Unknown]
